FAERS Safety Report 4368704-7 (Version None)
Quarter: 2004Q2

REPORT INFORMATION
  Report Type: 
  Country: None (occurrence: None)
  Receive Date: 20040602
  Receipt Date: 20040602
  Transmission Date: 20050107
  Serious: Yes (Other)
  Sender: FDA-Public Use
  Company Number: None

PATIENT
  Age: 55 Year
  Sex: Female
  Weight: 89.8122 kg

DRUGS (8)
  1. DURAGESIC [Suspect]
     Indication: SPINAL COLUMN STENOSIS
     Dosage: 50 MCG HOUR TRANSDERMAL
     Route: 062
     Dates: start: 20040412, end: 20040506
  2. DURAGESIC [Suspect]
     Indication: INTERVERTEBRAL DISC DEGENERATION
     Dosage: 75 MCG HOUR TRANSDERMAL
     Route: 062
     Dates: start: 20040506, end: 20040516
  3. SOMA [Concomitant]
  4. NEURONTIN [Concomitant]
  5. VIOXX [Concomitant]
  6. DYAZIDE [Concomitant]
  7. PREVACID [Concomitant]
  8. NORVASC [Concomitant]

REACTIONS (4)
  - CONDITION AGGRAVATED [None]
  - DRUG EFFECT DECREASED [None]
  - PAIN [None]
  - PHARMACEUTICAL PRODUCT COMPLAINT [None]
